FAERS Safety Report 6398696-0 (Version None)
Quarter: 2009Q4

REPORT INFORMATION
  Report Type: 
  Country: None (occurrence: None)
  Receive Date: 20091013
  Receipt Date: 20091001
  Transmission Date: 20100525
  Serious: Yes (Other)
  Sender: FDA-Public Use
  Company Number: GB-ELI_LILLY_AND_COMPANY-GB200910000380

PATIENT
  Age: 62 Year
  Sex: Female

DRUGS (1)
  1. OLANZAPINE [Suspect]
     Indication: SCHIZOPHRENIA
     Dosage: 10 MG, DAILY (1/D)
     Route: 048
     Dates: start: 20040401, end: 20090806

REACTIONS (1)
  - ELECTROCARDIOGRAM QT PROLONGED [None]
